FAERS Safety Report 9199818 (Version 3)
Quarter: 2014Q2

REPORT INFORMATION
  Report Type: Report from Study
  Country: FR (occurrence: FR)
  Receive Date: 20130329
  Receipt Date: 20140525
  Transmission Date: 20141212
  Serious: Yes (Hospitalization)
  Sender: FDA-Public Use
  Company Number: FR-MERCK-2011SP041013

PATIENT
  Age: 46 Year
  Sex: Male
  Weight: 101 kg

DRUGS (10)
  1. BOCEPREVIR [Suspect]
     Indication: HEPATITIS C
     Dosage: 800 MG, TID
     Route: 048
     Dates: start: 20110510, end: 20110721
  2. VIRAFERONPEG [Suspect]
     Dosage: 120 ?G, UNK
     Route: 058
     Dates: start: 20110412, end: 20110726
  3. REBETOL [Suspect]
     Indication: HEPATITIS C
     Dosage: 1200 MG, QD
     Route: 048
     Dates: start: 20110412, end: 20110721
  4. REBETOL [Suspect]
     Dosage: 800 MG, QD
     Route: 048
     Dates: start: 20110721, end: 20110726
  5. LEVOTHYROX [Concomitant]
     Indication: HYPOTHYROIDISM
     Dosage: BEGAN BEFORE ENROLLEMENT IN THE ATU
     Route: 048
  6. FLUDEX [Concomitant]
     Indication: HYPERTENSION
     Dosage: 1 DF, QD
     Route: 048
  7. [COMPOSITION UNSPECIFIED] [Concomitant]
     Indication: PRODUCT USED FOR UNKNOWN INDICATION
     Dosage: COLCHIMAX
     Route: 048
  8. AVLOCARDYL [Concomitant]
     Indication: PRODUCT USED FOR UNKNOWN INDICATION
     Dosage: AVLOCARDYL LP, INITIATED PRIOR THE TRIAL
     Route: 048
  9. COLCHICINE (+) DICYCLOMINE HYDROCHLORIDE [Concomitant]
     Indication: PRODUCT USED FOR UNKNOWN INDICATION
     Dosage: INITIATED PRIOR TRILA
  10. NEORECORMON [Concomitant]
     Indication: PRODUCT USED FOR UNKNOWN INDICATION
     Dosage: 3000 IU, QW
     Dates: start: 20110705, end: 20110721

REACTIONS (3)
  - Back pain [Recovering/Resolving]
  - Gouty arthritis [Recovered/Resolved]
  - Anaemia [Recovered/Resolved]
